FAERS Safety Report 15995451 (Version 1)
Quarter: 2019Q1

REPORT INFORMATION
  Report Type: Spontaneous
  Country: KR (occurrence: KR)
  Receive Date: 20190222
  Receipt Date: 20190222
  Transmission Date: 20190418
  Serious: Yes (Death, Hospitalization, Other)
  Sender: FDA-Public Use
  Company Number: KR-009507513-1902KOR003696

PATIENT
  Sex: Male

DRUGS (8)
  1. ULTIAN [Concomitant]
     Dosage: 5 MG/V; QUANITIY: 2, DAYS:1UNK
     Dates: start: 20181227
  2. KEYTRUDA [Suspect]
     Active Substance: PEMBROLIZUMAB
     Indication: ADENOCARCINOMA
  3. PERIOLIMEL N4E [Concomitant]
     Dosage: 1000ML/BAG, QUANTITY: 1, DAYS: 1
     Dates: start: 20181218
  4. KEYTRUDA [Suspect]
     Active Substance: PEMBROLIZUMAB
     Indication: NON-SMALL CELL LUNG CANCER METASTATIC
     Dosage: QUANTITY: 2, DAYS:1
     Dates: start: 20181214
  5. PERIOLIMEL N4E [Concomitant]
     Dosage: 1000ML/BAG, QUANTITY: 1, DAYS: 1
     Dates: start: 20181222
  6. PERIOLIMEL N4E [Concomitant]
     Dosage: 1000ML/BAG, QUANTITY: 1, DAYS: 1
     Dates: start: 20181226
  7. ULTIAN [Concomitant]
     Dosage: 5 MG/V; QUANITIY: 2, DAYS:1
     Dates: start: 20181226
  8. ALBUMIN HUMAN [Concomitant]
     Active Substance: ALBUMIN HUMAN
     Dosage: 20% 100ML, QUANTITY:1, DAYS: 1
     Dates: start: 20181219

REACTIONS (2)
  - Death [Fatal]
  - Adverse event [Unknown]

NARRATIVE: CASE EVENT DATE: 20181227
